FAERS Safety Report 5447539-8 (Version None)
Quarter: 2007Q3

REPORT INFORMATION
  Report Type: 
  Country: None (occurrence: None)
  Receive Date: 20070910
  Receipt Date: 20070903
  Transmission Date: 20080115
  Serious: Yes (Hospitalization)
  Sender: FDA-Public Use
  Company Number: B0486361A

PATIENT
  Age: 35 Year
  Sex: Female
  Weight: 68 kg

DRUGS (4)
  1. AUGMENTIN '125' [Suspect]
     Dosage: 625MG THREE TIMES PER DAY
     Route: 048
     Dates: start: 20070709, end: 20070718
  2. HERCEPTIN [Concomitant]
     Indication: BREAST CANCER
     Route: 065
  3. CARBOPLATIN [Concomitant]
     Indication: BREAST CANCER
     Route: 065
  4. TAXOL [Concomitant]
     Indication: BREAST CANCER
     Route: 065

REACTIONS (3)
  - ANAPHYLACTIC REACTION [None]
  - APLASTIC ANAEMIA [None]
  - RASH [None]
